FAERS Safety Report 22089695 (Version 1)
Quarter: 2023Q1

REPORT INFORMATION
  Report Type: Spontaneous
  Country: US (occurrence: US)
  Receive Date: 20230313
  Receipt Date: 20230313
  Transmission Date: 20230417
  Serious: Yes (Life-Threatening, Hospitalization, Other)
  Sender: FDA-Public Use
  Company Number: US-JUBILANT CADISTA PHARMACEUTICALS-2023JUB00112

PATIENT
  Age: 72 Year
  Sex: Female

DRUGS (4)
  1. MYCOPHENOLATE MOFETIL [Suspect]
     Active Substance: MYCOPHENOLATE MOFETIL
     Indication: Immunosuppressant drug therapy
     Dosage: 500 MG, EVERY 12 HOUR
  2. PREDNISONE [Suspect]
     Active Substance: PREDNISONE
     Indication: Immunosuppressant drug therapy
     Dosage: 7.5 MG, 1X/DAY
  3. TACROLIMUS [Suspect]
     Active Substance: TACROLIMUS
     Indication: Immunosuppressant drug therapy
     Dosage: 1.5 MG, 1X/DAY; 1.5 MG IN THE MORNING AND 1 MG AT NIGHT
  4. TACROLIMUS [Suspect]
     Active Substance: TACROLIMUS
     Dosage: 1 MG, 1X/DAY; 1.5 MG IN THE MORNING AND 1 MG AT NIGHT

REACTIONS (1)
  - Post transplant lymphoproliferative disorder [Unknown]
